FAERS Safety Report 6816486-9 (Version None)
Quarter: 2010Q3

REPORT INFORMATION
  Report Type: 
  Country: None (occurrence: None)
  Receive Date: 20100705
  Receipt Date: 20100623
  Transmission Date: 20110219
  Serious: Yes (Disabling, Other)
  Sender: FDA-Public Use
  Company Number: PHFR2010GB01050

PATIENT
  Sex: Female
  Weight: 66 kg

DRUGS (5)
  1. RASILEZ [Suspect]
     Indication: HYPERTENSION
     Dosage: 150MG
     Route: 048
     Dates: start: 20091013, end: 20100511
  2. BIMATOPROST [Concomitant]
     Indication: GLAUCOMA
     Route: 047
  3. BISOPROLOL [Concomitant]
     Indication: HYPERTENSION
     Dosage: 10MG
     Route: 048
  4. LERCANIDIPINE [Concomitant]
     Dosage: 10MG
     Route: 048
     Dates: start: 20090701
  5. TIMOLOL MALEATE [Concomitant]
     Indication: GLAUCOMA
     Route: 047

REACTIONS (2)
  - DYSPNOEA [None]
  - WHEEZING [None]
